FAERS Safety Report 6341504-4 (Version None)
Quarter: 2009Q3

REPORT INFORMATION
  Report Type: 
  Country: None (occurrence: None)
  Receive Date: 20090904
  Receipt Date: 20090828
  Transmission Date: 20100115
  Serious: Yes (Disabling, Other)
  Sender: FDA-Public Use
  Company Number: JP-JNJFOC-20090900575

PATIENT
  Sex: Male

DRUGS (1)
  1. RISPERIDONE [Suspect]
     Indication: DRUG USE FOR UNKNOWN INDICATION
     Route: 048

REACTIONS (6)
  - ASTHENIA [None]
  - BLUNTED AFFECT [None]
  - CEREBRAL DISORDER [None]
  - DISABILITY [None]
  - PSYCHOTIC DISORDER [None]
  - WEIGHT INCREASED [None]
